FAERS Safety Report 7845754-7 (Version None)
Quarter: 2011Q4

REPORT INFORMATION
  Report Type: 
  Country: None (occurrence: None)
  Receive Date: 20111025
  Receipt Date: 20111021
  Transmission Date: 20120403
  Serious: Yes (Hospitalization)
  Sender: FDA-Public Use
  Company Number: IT-BAYER-2011-102675

PATIENT
  Sex: Male

DRUGS (1)
  1. KETOPROFEN [Suspect]

REACTIONS (3)
  - ANAEMIA [None]
  - GASTRITIS [None]
  - DUODENAL ULCER [None]
